FAERS Safety Report 11206843 (Version 1)
Quarter: 2015Q2

REPORT INFORMATION
  Report Type: Report from Study
  Country: US (occurrence: US)
  Receive Date: 20150622
  Receipt Date: 20150622
  Transmission Date: 20150821
  Serious: No
  Sender: FDA-Public Use
  Company Number: US-ABBVIE-15P-163-1370742-00

PATIENT
  Sex: Male

DRUGS (2)
  1. RIBASPHERE [Suspect]
     Active Substance: RIBAVIRIN
     Indication: PRODUCT USED FOR UNKNOWN INDICATION
     Route: 048
  2. VIEKIRA PAK [Suspect]
     Active Substance: DASABUVIR\OMBITASVIR\PARITAPREVIR\RITONAVIR
     Indication: HEPATITIS C
     Dosage: 2 PINK TABS IN AM, 1 BEIGE TAB BID (1 IN AM, 1 IN THE EVENING)
     Route: 048
     Dates: start: 20150323

REACTIONS (3)
  - Renal pain [Unknown]
  - Chromaturia [Unknown]
  - Haematuria [Unknown]
